FAERS Safety Report 6469984-4 (Version None)
Quarter: 2009Q4

REPORT INFORMATION
  Report Type: 
  Country: None (occurrence: None)
  Receive Date: 20091203
  Receipt Date: 20080102
  Transmission Date: 20100525
  Serious: Yes (Hospitalization)
  Sender: FDA-Public Use
  Company Number: US-ELI_LILLY_AND_COMPANY-US200712003415

PATIENT
  Sex: Male
  Weight: 81.633 kg

DRUGS (12)
  1. BYETTA [Suspect]
     Indication: TYPE 2 DIABETES MELLITUS
     Dosage: 5 UG, 2/D
     Route: 058
     Dates: start: 20070601, end: 20070901
  2. BYETTA [Suspect]
     Dosage: 10 UG, 2/D
     Route: 058
     Dates: start: 20070901, end: 20071101
  3. BYETTA [Suspect]
     Dosage: 5 UG, 2/D
     Route: 058
     Dates: start: 20071101
  4. GEMFIBROZIL [Concomitant]
     Indication: HYPERTENSION
     Dosage: 600 MG, 2/D
  5. DITIZEM [Concomitant]
     Indication: HYPERTENSION
     Dosage: 240 MG, DAILY (1/D)
  6. LOSARTAN POTASSIUM [Concomitant]
     Indication: HYPERTENSION
     Dosage: 100 MG, DAILY (1/D)
  7. ALTACE [Concomitant]
     Indication: HYPERTENSION
     Dosage: 10 MG, DAILY (1/D)
  8. FINASTERIDE [Concomitant]
     Dosage: 5 MG, DAILY (1/D)
  9. SYNTHROID [Concomitant]
     Indication: THYROID DISORDER
     Dosage: 112 UG, DAILY (1/D)
  10. ASPIRIN [Concomitant]
     Indication: HYPERTENSION
     Dosage: 325 MG, DAILY (1/D)
  11. HUMULIN R [Concomitant]
     Indication: DIABETES MELLITUS
     Dosage: 10 U, 2/D
     Dates: start: 19800101
  12. HUMULIN N [Concomitant]
     Indication: DIABETES MELLITUS
     Dosage: 20 U, 2/D
     Dates: start: 19800101

REACTIONS (8)
  - ASTHENIA [None]
  - ATRIAL FIBRILLATION [None]
  - BLOOD PRESSURE DECREASED [None]
  - DIZZINESS [None]
  - HEART RATE INCREASED [None]
  - NAUSEA [None]
  - TREMOR [None]
  - WEIGHT DECREASED [None]
